FAERS Safety Report 4293215-7 (Version None)
Quarter: 2004Q1

REPORT INFORMATION
  Report Type: 
  Country: None (occurrence: None)
  Receive Date: 20040210
  Receipt Date: 20040128
  Transmission Date: 20041129
  Serious: Yes (Other)
  Sender: FDA-Public Use
  Company Number: 2004006267

PATIENT
  Age: 84 Year
  Sex: Female

DRUGS (2)
  1. NEURONTIN [Suspect]
     Indication: PAIN
     Dosage: ORAL
     Route: 048
     Dates: start: 20031201, end: 20031208
  2. OXYCODONE HCL [Suspect]
     Indication: PAIN

REACTIONS (3)
  - BONE NEOPLASM MALIGNANT [None]
  - HALLUCINATION, VISUAL [None]
  - SOMNOLENCE [None]
